FAERS Safety Report 6638829-1 (Version None)
Quarter: 2010Q1

REPORT INFORMATION
  Report Type: 
  Country: None (occurrence: None)
  Receive Date: 20100317
  Receipt Date: 20100305
  Transmission Date: 20100710
  Serious: Yes (Other)
  Sender: FDA-Public Use
  Company Number: US-PFIZER INC-2010031093

PATIENT
  Age: 47 Year
  Sex: Female
  Weight: 55.782 kg

DRUGS (4)
  1. ZOLOFT [Suspect]
     Indication: DEPRESSION
     Dosage: 150 MG, DAILY
  2. ZOLOFT [Suspect]
     Dosage: 50 MG, DAILY
     Dates: start: 20000101
  3. WELLBUTRIN XL [Concomitant]
     Indication: DEPRESSION
     Dosage: UNK
     Dates: start: 20050101
  4. CALCIUM [Concomitant]
     Dosage: UNK

REACTIONS (5)
  - ATROPHY [None]
  - FALL [None]
  - GAIT DISTURBANCE [None]
  - MUSCULAR WEAKNESS [None]
  - PERONEAL MUSCULAR ATROPHY [None]
